FAERS Safety Report 14662701 (Version 2)
Quarter: 2018Q2

REPORT INFORMATION
  Report Type: Spontaneous
  Country: DE (occurrence: DE)
  Receive Date: 20180321
  Receipt Date: 20180426
  Transmission Date: 20180711
  Serious: Yes (Death, Hospitalization)
  Sender: FDA-Public Use
  Company Number: DE-ROCHE-2088403

PATIENT
  Age: 78 Year
  Sex: Female
  Weight: 57 kg

DRUGS (22)
  1. RIOPAN (GERMANY) [Concomitant]
     Indication: OESOPHAGITIS
     Dosage: 3 X 1 SUSPENSIONS
     Route: 048
     Dates: start: 20180130, end: 20180206
  2. KALYMIN [Concomitant]
     Route: 042
     Dates: start: 20180201, end: 20180221
  3. ERYTHROMYCIN. [Concomitant]
     Active Substance: ERYTHROMYCIN
     Route: 042
     Dates: start: 20180130, end: 20180201
  4. RANITIDIN [Concomitant]
     Active Substance: RANITIDINE HYDROCHLORIDE
     Indication: PREMEDICATION
     Dosage: ONCE
     Route: 042
     Dates: start: 20180206, end: 20180206
  5. TAVEGIL [Concomitant]
     Active Substance: CLEMASTINE FUMARATE
     Indication: PREMEDICATION
     Dosage: ONCE
     Route: 042
     Dates: start: 20180206, end: 20180206
  6. PANTOZOL [Concomitant]
     Active Substance: PANTOPRAZOLE SODIUM
     Route: 042
     Dates: start: 20180130, end: 20180220
  7. JONOSTERIL [Concomitant]
     Active Substance: CALCIUM ACETATE\MAGNESIUM ACETATE\POTASSIUM ACETATE\SODIUM ACETATE\SODIUM CHLORIDE
     Indication: FLUID REPLACEMENT
     Route: 042
     Dates: start: 20180130, end: 20180221
  8. FUROSEMID [Concomitant]
     Active Substance: FUROSEMIDE
     Indication: POLYURIA
     Route: 042
     Dates: start: 20180216, end: 20180220
  9. METOCLOPRAMIDE. [Concomitant]
     Active Substance: METOCLOPRAMIDE
     Route: 042
     Dates: start: 20180130, end: 20180220
  10. CLEXANE [Concomitant]
     Active Substance: ENOXAPARIN SODIUM
     Indication: THROMBOSIS PROPHYLAXIS
     Route: 058
     Dates: start: 20180130, end: 20180220
  11. FORTECORTIN [Concomitant]
     Active Substance: DEXAMETHASONE
     Indication: PREMEDICATION
     Dosage: ONCE
     Route: 042
     Dates: start: 20180206, end: 20180206
  12. CARBOPLATIN. [Concomitant]
     Active Substance: CARBOPLATIN
     Indication: OVARIAN CANCER
     Dosage: AUC 5
     Route: 042
     Dates: start: 20180206, end: 20180206
  13. METOPROLOL. [Concomitant]
     Active Substance: METOPROLOL
     Indication: HYPERTENSION
     Dosage: 2 X 47.5 MG
     Route: 048
     Dates: start: 20180130, end: 20180209
  14. CARMEN (GERMANY) [Concomitant]
     Active Substance: LERCANIDIPINE HYDROCHLORIDE
     Indication: HYPERTENSION
     Route: 048
     Dates: start: 20180130, end: 20180209
  15. PANTOZOL [Concomitant]
     Active Substance: PANTOPRAZOLE SODIUM
     Indication: OESOPHAGITIS
     Route: 048
     Dates: start: 20180130, end: 20180220
  16. BIFITERAL [Concomitant]
     Active Substance: LACTULOSE
     Dosage: 3 X 2 TABLESPOONS PER DAY
     Route: 048
     Dates: start: 20180215, end: 20180219
  17. OCTREOTIDE. [Concomitant]
     Active Substance: OCTREOTIDE
     Route: 058
     Dates: start: 20180206, end: 20180212
  18. AVASTIN [Suspect]
     Active Substance: BEVACIZUMAB
     Indication: OVARIAN CANCER METASTATIC
     Route: 042
     Dates: start: 20180206, end: 20180206
  19. MORPHINE [Concomitant]
     Active Substance: MORPHINE
     Indication: ANALGESIC THERAPY
     Route: 058
     Dates: start: 20180209, end: 20180223
  20. SMOFKABIVEN [Concomitant]
     Active Substance: AMINO ACIDS\DEXTROSE\ELECTROLYTES NOS\SOYBEAN OIL
     Indication: PARENTERAL NUTRITION
     Dosage: 1 PACKAGE PER DAY
     Route: 042
     Dates: start: 20180130, end: 20180220
  21. PACLITAXEL. [Concomitant]
     Active Substance: PACLITAXEL
     Indication: OVARIAN CANCER
     Route: 042
     Dates: start: 20180206, end: 20180206
  22. GRANISETRON [Concomitant]
     Active Substance: GRANISETRON
     Indication: PREMEDICATION
     Dosage: ONCE
     Route: 042
     Dates: start: 20180206, end: 20180206

REACTIONS (2)
  - Subileus [Unknown]
  - Gastrointestinal perforation [Fatal]

NARRATIVE: CASE EVENT DATE: 20180219
